FAERS Safety Report 13669151 (Version 1)
Quarter: 2017Q2

REPORT INFORMATION
  Report Type: Report from Study
  Country: US (occurrence: US)
  Receive Date: 20170620
  Receipt Date: 20170620
  Transmission Date: 20170830
  Serious: Yes (Other)
  Sender: FDA-Public Use
  Company Number: US-UCBSA-2017010315

PATIENT
  Age: 16 Year
  Sex: Female

DRUGS (2)
  1. TEGRETOL [Concomitant]
     Active Substance: CARBAMAZEPINE
     Indication: PRODUCT USED FOR UNKNOWN INDICATION
     Dosage: UNK
  2. LEVETIRACETAM. [Suspect]
     Active Substance: LEVETIRACETAM
     Indication: TEMPORAL LOBE EPILEPSY
     Dosage: 500 G, 2X/DAY (BID)

REACTIONS (9)
  - Asthenia [Unknown]
  - Hypersomnia [Unknown]
  - Anxiety [Unknown]
  - Sleep disorder [Unknown]
  - Gastric disorder [Unknown]
  - Pain [Unknown]
  - Depression [Unknown]
  - Intentional self-injury [Unknown]
  - Feeling abnormal [Unknown]
